FAERS Safety Report 20430219 (Version 3)
Quarter: 2022Q2

REPORT INFORMATION
  Report Type: Spontaneous
  Country: US (occurrence: US)
  Receive Date: 20220204
  Receipt Date: 20220628
  Transmission Date: 20220721
  Serious: No
  Sender: FDA-Public Use
  Company Number: US-PFIZER INC-202200150776

PATIENT
  Age: 67 Year
  Sex: Female

DRUGS (3)
  1. XELJANZ XR [Suspect]
     Active Substance: TOFACITINIB CITRATE
     Indication: Colitis ulcerative
     Dosage: 22 MG, 1X/DAY (FOR 22 WEEKS)
     Route: 048
     Dates: start: 20211112
  2. XELJANZ XR [Suspect]
     Active Substance: TOFACITINIB CITRATE
     Dosage: 11 MG, 1X/DAY
     Route: 048
     Dates: start: 202205
  3. MESALAMINE [Concomitant]
     Active Substance: MESALAMINE
     Dosage: UNK

REACTIONS (3)
  - Off label use [Unknown]
  - Product dose omission in error [Unknown]
  - Condition aggravated [Unknown]

NARRATIVE: CASE EVENT DATE: 20211112
